FAERS Safety Report 22532577 (Version 1)
Quarter: 2023Q2

REPORT INFORMATION
  Report Type: Spontaneous
  Country: None (occurrence: US)
  Receive Date: 20230607
  Receipt Date: 20230607
  Transmission Date: 20230722
  Serious: No
  Sender: FDA-Public Use
  Company Number: US-Breckenridge Pharmaceutical, Inc.-2142441

PATIENT
  Sex: Female

DRUGS (1)
  1. RIVASTIGMINE TRANSDERMAL SYSTEM [Suspect]
     Active Substance: RIVASTIGMINE
     Route: 062

REACTIONS (4)
  - Erythema [Unknown]
  - Skin irritation [Unknown]
  - Wrong technique in product usage process [Unknown]
  - Product use complaint [Not Recovered/Not Resolved]
